FAERS Safety Report 13120854 (Version 2)
Quarter: 2017Q1

REPORT INFORMATION
  Report Type: Spontaneous
  Country: US (occurrence: US)
  Receive Date: 20170117
  Receipt Date: 20170125
  Transmission Date: 20170428
  Serious: No
  Sender: FDA-Public Use
  Company Number: US-HORIZON-PEN-0015-2017

PATIENT
  Age: 84 Year
  Sex: Male

DRUGS (13)
  1. PANTOPRAZOLE [Concomitant]
     Active Substance: PANTOPRAZOLE SODIUM
  2. SUPER B COMPLEX [Concomitant]
     Active Substance: CYANOCOBALAMIN\DEXPANTHENOL\NIACINAMIDE\PYRIDOXINE HYDROCHLORIDE\RIBOFLAVIN 5^-PHOSPHATE SODIUM\THIAMINE HYDROCHLORIDE\VITAMIN B COMPLEX
  3. LORATADINE. [Concomitant]
     Active Substance: LORATADINE
     Indication: HYPERSENSITIVITY
  4. CALCIUM PLUS D3 [Concomitant]
  5. SIMVASTATIN. [Concomitant]
     Active Substance: SIMVASTATIN
  6. LOSARTAN. [Concomitant]
     Active Substance: LOSARTAN
  7. TRAMADOL. [Concomitant]
     Active Substance: TRAMADOL
     Indication: NERVE INJURY
  8. IRON [Concomitant]
     Active Substance: IRON
  9. GLUCOSAMINE [Concomitant]
     Active Substance: GLUCOSAMINE
  10. PENNSAID [Suspect]
     Active Substance: DICLOFENAC SODIUM
     Indication: OSTEOARTHRITIS
     Dosage: USED AS NEEDED
     Dates: start: 201602
  11. TAMSULOSIN [Concomitant]
     Active Substance: TAMSULOSIN
  12. ASPIRIN 81 MG [Concomitant]
     Active Substance: ASPIRIN
  13. VITAMIN C [Concomitant]
     Active Substance: ASCORBIC ACID

REACTIONS (2)
  - Intentional product misuse [Unknown]
  - Dehydration [Recovered/Resolved]
